FAERS Safety Report 14255586 (Version 2)
Quarter: 2018Q1

REPORT INFORMATION
  Report Type: Spontaneous
  Country: GB (occurrence: GB)
  Receive Date: 20171206
  Receipt Date: 20180216
  Transmission Date: 20180508
  Serious: Yes (Death, Hospitalization)
  Sender: FDA-Public Use
  Company Number: US-ASTRAZENECA-2017SF24050

PATIENT
  Age: 5 Month
  Weight: 4.7 kg

DRUGS (1)
  1. SYNAGIS [Suspect]
     Active Substance: PALIVIZUMAB
     Indication: IMMUNISATION
     Dosage: 0.7ML UNKNOWN
     Route: 030
     Dates: start: 20171020, end: 20171020

REACTIONS (1)
  - Respiratory syncytial virus bronchiolitis [Fatal]

NARRATIVE: CASE EVENT DATE: 20171022
